FAERS Safety Report 7843419-9 (Version None)
Quarter: 2011Q4

REPORT INFORMATION
  Report Type: 
  Country: None (occurrence: None)
  Receive Date: 20111025
  Receipt Date: 20111012
  Transmission Date: 20120403
  Serious: Yes (Hospitalization)
  Sender: FDA-Public Use
  Company Number: JP-ROCHE-648371

PATIENT
  Age: 43 Year
  Sex: Male

DRUGS (6)
  1. SPANIDIN [Concomitant]
     Route: 041
  2. PROGRAF [Concomitant]
     Route: 048
  3. MEDROL [Concomitant]
     Route: 048
  4. MYCOPHENOLATE MOFETIL (CELLCEPT) [Suspect]
     Indication: PROPHYLAXIS AGAINST TRANSPLANT REJECTION
     Route: 048
  5. CYCLOSPORINE [Concomitant]
     Route: 048
  6. SIMULECT [Concomitant]
     Route: 042

REACTIONS (4)
  - HEPATITIS VIRAL [None]
  - VARICELLA [None]
  - PNEUMONIA HERPES VIRAL [None]
  - DISSEMINATED INTRAVASCULAR COAGULATION [None]
